FAERS Safety Report 16148572 (Version 3)
Quarter: 2019Q2

REPORT INFORMATION
  Report Type: Report from Study
  Country: US (occurrence: US)
  Receive Date: 20190402
  Receipt Date: 20190529
  Transmission Date: 20190711
  Serious: Yes (Hospitalization, Disabling, Other)
  Sender: FDA-Public Use
  Company Number: US-B.I. PHARMACEUTICALS,INC./RIDGEFIELD-2018-BI-054072

PATIENT
  Sex: Female

DRUGS (2)
  1. OFEV [Suspect]
     Active Substance: NINTEDANIB
     Route: 048
     Dates: start: 20181001
  2. OFEV [Suspect]
     Active Substance: NINTEDANIB
     Indication: IDIOPATHIC PULMONARY FIBROSIS
     Dosage: TAKE 1 CAPSULE (150 MG) BY MOUTH TWICE A DAY WITH MEALS
     Route: 048
     Dates: start: 20180926

REACTIONS (21)
  - Respiratory disorder [Not Recovered/Not Resolved]
  - Hip fracture [Not Recovered/Not Resolved]
  - Diarrhoea [Not Recovered/Not Resolved]
  - Dyspnoea [Not Recovered/Not Resolved]
  - Nausea [Not Recovered/Not Resolved]
  - Oxygen consumption increased [Not Recovered/Not Resolved]
  - Paraesthesia [Not Recovered/Not Resolved]
  - Weight decreased [Not Recovered/Not Resolved]
  - Decreased appetite [Recovered/Resolved]
  - Dyspepsia [Not Recovered/Not Resolved]
  - Fall [Not Recovered/Not Resolved]
  - Heart rate irregular [Not Recovered/Not Resolved]
  - Decreased appetite [Not Recovered/Not Resolved]
  - Hypertension [Not Recovered/Not Resolved]
  - Diarrhoea [Recovered/Resolved]
  - Nasopharyngitis [Recovered/Resolved]
  - Multiple allergies [Recovered/Resolved]
  - Fatigue [Not Recovered/Not Resolved]
  - Nasopharyngitis [Not Recovered/Not Resolved]
  - Bronchitis [Not Recovered/Not Resolved]
  - Productive cough [Not Recovered/Not Resolved]
